FAERS Safety Report 8082425-9 (Version None)
Quarter: 2012Q1

REPORT INFORMATION
  Report Type: 
  Country: None (occurrence: None)
  Receive Date: 20120127
  Receipt Date: 20110214
  Transmission Date: 20120608
  Serious: No
  Sender: FDA-Public Use
  Company Number: US-ABBOTT-11P-163-0706352-00

PATIENT
  Sex: Female
  Weight: 67.646 kg

DRUGS (9)
  1. FOLIC ACID [Concomitant]
     Indication: VITAMIN SUPPLEMENTATION
  2. LASIX [Concomitant]
     Indication: FLUID RETENTION
  3. ZETIA [Concomitant]
     Indication: PRODUCT USED FOR UNKNOWN INDICATION
  4. PRILOSEC [Concomitant]
     Indication: GASTROOESOPHAGEAL REFLUX DISEASE
  5. HUMIRA [Suspect]
     Indication: RHEUMATOID ARTHRITIS
     Dates: start: 20090101, end: 20101226
  6. COUMADIN [Concomitant]
     Indication: ATRIAL FIBRILLATION
  7. METHOTREXATE [Concomitant]
     Indication: RHEUMATOID ARTHRITIS
     Dosage: 1,  EVERY SUNDAY
     Dates: start: 19990101
  8. PACERONE [Concomitant]
     Indication: ATRIAL FIBRILLATION
  9. HUMIRA [Suspect]
     Dates: start: 20110201

REACTIONS (3)
  - BRONCHITIS [None]
  - DYSPNOEA [None]
  - PRODUCTIVE COUGH [None]
